FAERS Safety Report 4726323-4 (Version None)
Quarter: 2005Q3

REPORT INFORMATION
  Report Type: 
  Country: None (occurrence: None)
  Receive Date: 20050725
  Receipt Date: 20050712
  Transmission Date: 20060218
  Serious: Yes (Other)
  Sender: FDA-Public Use
  Company Number: 2005100213

PATIENT
  Age: 77 Year
  Sex: Female
  Weight: 68.0396 kg

DRUGS (2)
  1. DETROL LA [Suspect]
     Indication: HYPERTONIC BLADDER
     Dosage: 4 MG (4 MG, 1 IN 1 D),ORAL
     Route: 048
     Dates: start: 20050101
  2. VITAMINS (VITAMINS) [Concomitant]

REACTIONS (2)
  - DRUG EFFECT DECREASED [None]
  - EYE OPERATION [None]
